FAERS Safety Report 7523741-6 (Version None)
Quarter: 2011Q2

REPORT INFORMATION
  Report Type: 
  Country: None (occurrence: None)
  Receive Date: 20110603
  Receipt Date: 20110524
  Transmission Date: 20111010
  Serious: Yes (Other)
  Sender: FDA-Public Use
  Company Number: US-US-EMD SERONO, INC.-7055429

PATIENT
  Sex: Female

DRUGS (21)
  1. SPIRONOLACT [Concomitant]
  2. ADVIL [Concomitant]
  3. VITAMIN D [Concomitant]
  4. RECLAST [Concomitant]
  5. CLONAZEPAM [Concomitant]
  6. NEXIUM [Concomitant]
  7. PREDNISONE [Concomitant]
  8. FOLIC ACID [Concomitant]
  9. AMLODIPINE [Concomitant]
  10. DOXEPIN HCL [Concomitant]
  11. PERCOCET [Concomitant]
  12. REBIF [Suspect]
     Indication: MULTIPLE SCLEROSIS
     Route: 058
     Dates: start: 20100811
  13. PLAQUENIL [Concomitant]
  14. LOSARTAN POTASSIUM [Concomitant]
  15. ALIGN [Concomitant]
  16. TYLENOL-500 [Concomitant]
  17. METHOTREXATE [Concomitant]
     Indication: RHEUMATOID ARTHRITIS
  18. LAMOTRIGINE [Concomitant]
  19. OSCAL [Concomitant]
  20. MULTI-VITAMIN [Concomitant]
  21. CITALOPRAM [Concomitant]

REACTIONS (3)
  - MORPHOEA [None]
  - FALL [None]
  - COGNITIVE DISORDER [None]
